FAERS Safety Report 8326573 (Version 3)
Quarter: 2016Q1

REPORT INFORMATION
  Report Type: Report from Study
  Country: US (occurrence: US)
  Receive Date: 20120109
  Receipt Date: 20160218
  Transmission Date: 20160526
  Serious: Yes (Hospitalization)
  Sender: FDA-Public Use
  Company Number: US-JNJFOC-20111212358

PATIENT
  Age: 17 Year
  Sex: Male
  Weight: 52.5 kg

DRUGS (32)
  1. DIPHENHYDRAMINE. [Suspect]
     Active Substance: DIPHENHYDRAMINE
     Indication: PRODUCT USED FOR UNKNOWN INDICATION
  2. ARA-C [Suspect]
     Active Substance: CYTARABINE
     Indication: PRODUCT USED FOR UNKNOWN INDICATION
  3. ZANTAC [Concomitant]
     Active Substance: RANITIDINE HYDROCHLORIDE
  4. ALUMINUM HYDROXIDE. [Suspect]
     Active Substance: ALUMINUM HYDROXIDE
     Indication: PRODUCT USED FOR UNKNOWN INDICATION
  5. CHLORHEXIDINE GLUCONATE. [Concomitant]
     Active Substance: CHLORHEXIDINE GLUCONATE
  6. ATIVAN [Concomitant]
     Active Substance: LORAZEPAM
  7. VANCOMYCIN [Concomitant]
     Active Substance: VANCOMYCIN
  8. REMICADE [Suspect]
     Active Substance: INFLIXIMAB
     Indication: INFLAMMATORY BOWEL DISEASE
     Route: 042
     Dates: start: 20051103, end: 20090429
  9. PEPTAMEN [Concomitant]
     Dosage: HIGH CALORIE SUPPLEMENT
  10. ZOSYN [Concomitant]
     Active Substance: PIPERACILLIN SODIUM\TAZOBACTAM SODIUM
  11. ETOPOSIDE. [Suspect]
     Active Substance: ETOPOSIDE
     Indication: PRODUCT USED FOR UNKNOWN INDICATION
  12. GENTAMICIN. [Concomitant]
     Active Substance: GENTAMICIN
  13. FLAGYL [Concomitant]
     Active Substance: METRONIDAZOLE\METRONIDAZOLE HYDROCHLORIDE
  14. FLUCONAZOLE. [Concomitant]
     Active Substance: FLUCONAZOLE
  15. OMEPRAZOLE. [Suspect]
     Active Substance: OMEPRAZOLE
     Indication: PRODUCT USED FOR UNKNOWN INDICATION
  16. CALCIUM CARBONATE. [Concomitant]
     Active Substance: CALCIUM CARBONATE
  17. ONDANSETRON [Concomitant]
     Active Substance: ONDANSETRON
  18. CEFEPIME [Concomitant]
     Active Substance: CEFEPIME HYDROCHLORIDE
  19. AMPHOJEL [Concomitant]
     Active Substance: ALUMINUM HYDROXIDE
  20. COTRIMOXAZOLE [Concomitant]
     Active Substance: SULFAMETHOXAZOLE\TRIMETHOPRIM
  21. ANTIBIOTICS [Concomitant]
     Active Substance: UNSPECIFIED INGREDIENT
     Indication: INFLAMMATORY BOWEL DISEASE
  22. BENADRYL [Concomitant]
     Active Substance: DIPHENHYDRAMINE HYDROCHLORIDE
  23. ZYRTEC [Concomitant]
     Active Substance: CETIRIZINE HYDROCHLORIDE
  24. PANTOPRAZOLE [Concomitant]
     Active Substance: PANTOPRAZOLE SODIUM
  25. SCOPOLAMINE [Concomitant]
     Active Substance: SCOPOLAMINE
  26. OXYCODONE [Suspect]
     Active Substance: OXYCODONE
     Indication: PRODUCT USED FOR UNKNOWN INDICATION
  27. MUPIROCIN. [Suspect]
     Active Substance: MUPIROCIN
     Indication: PRODUCT USED FOR UNKNOWN INDICATION
  28. HUMIRA [Concomitant]
     Active Substance: ADALIMUMAB
     Dates: start: 20090512, end: 20100331
  29. RANITIDINE [Concomitant]
     Active Substance: RANITIDINE\RANITIDINE HYDROCHLORIDE
  30. CHOLECALCIFEROL [Concomitant]
     Active Substance: CHOLECALCIFEROL
  31. LORAZEPAM. [Concomitant]
     Active Substance: LORAZEPAM
  32. BACTRIM [Concomitant]
     Active Substance: SULFAMETHOXAZOLE\TRIMETHOPRIM

REACTIONS (1)
  - Gastrointestinal haemorrhage [Recovered/Resolved]

NARRATIVE: CASE EVENT DATE: 20111222
